FAERS Safety Report 8742446 (Version 1)
Quarter: 2012Q4

REPORT INFORMATION
  Report Type: 
  Country: AR (occurrence: AR)
  Receive Date: 20120829
  Receipt Date: 20120829
  Transmission Date: 20130627
  Serious: Yes (Death, Hospitalization, Other)
  Sender: FDA-Public Use
  Company Number: AR-BRISTOL-MYERS SQUIBB COMPANY-16511388

PATIENT
  Age: 58 Year
  Sex: Male

DRUGS (2)
  1. YERVOY [Suspect]
     Indication: METASTATIC MALIGNANT MELANOMA
     Dosage: no of inf:2 
Infusion on 9Feb12
     Dates: start: 20120209
  2. CARBOPLATIN [Suspect]
     Dates: start: 201201

REACTIONS (4)
  - Death [Fatal]
  - Hepatotoxicity [Unknown]
  - Malignant neoplasm progression [Unknown]
  - Sepsis [Unknown]
